FAERS Safety Report 8030989-3 (Version None)
Quarter: 2012Q1

REPORT INFORMATION
  Report Type: 
  Country: None (occurrence: None)
  Receive Date: 20120105
  Receipt Date: 20111227
  Transmission Date: 20120608
  Serious: Yes (Hospitalization)
  Sender: FDA-Public Use
  Company Number: 1000026622

PATIENT
  Age: 84 Year
  Sex: Male

DRUGS (11)
  1. DIGOXIN [Suspect]
     Dosage: 0.12 MG (0.12 MG,1 IN 1 D), ORAL
     Route: 048
     Dates: start: 20100101, end: 20110430
  2. SEGURIL (FUROSEMIDE) [Concomitant]
  3. CRESTOR [Concomitant]
  4. OMNIC OCAS (TAMSULOSIN HYDROCHLORIDE) [Concomitant]
  5. RABEPRAZOLE SODIUM [Concomitant]
  6. PROSCAR [Concomitant]
  7. NEBIVOLOL HCL [Suspect]
     Dosage: 2.5 MG (2.5 MG,1 IN 1),ORAL
     Route: 048
     Dates: start: 20110201, end: 20110430
  8. OMNIC OCAS (TAMSULOSIN HYDROCHLORIDE) [Concomitant]
  9. SINTROM [Concomitant]
  10. ATACAND HCT [Concomitant]
  11. LACEROL (DILTIAZEM HYDROCHLORIDE) [Concomitant]

REACTIONS (8)
  - VENTRICULAR DYSFUNCTION [None]
  - ATRIAL FIBRILLATION [None]
  - BUNDLE BRANCH BLOCK RIGHT [None]
  - HEART RATE DECREASED [None]
  - CONDITION AGGRAVATED [None]
  - ELECTROCARDIOGRAM REPOLARISATION ABNORMALITY [None]
  - BLOOD CREATININE INCREASED [None]
  - TOXICITY TO VARIOUS AGENTS [None]
